FAERS Safety Report 25422707 (Version 3)
Quarter: 2025Q3

REPORT INFORMATION
  Report Type: Spontaneous
  Country: JP (occurrence: JP)
  Receive Date: 20250611
  Receipt Date: 20250710
  Transmission Date: 20251020
  Serious: Yes (Other)
  Sender: CSL BEHRING
  Company Number: JP-BEH-2025208840

PATIENT
  Age: 52 Year
  Sex: Male
  Weight: 94.3 kg

DRUGS (17)
  1. PRIVIGEN [Suspect]
     Active Substance: HUMAN IMMUNOGLOBULIN G
     Indication: Hypogammaglobulinaemia
     Route: 042
     Dates: start: 20250325, end: 20250325
  2. DASATINIB [Concomitant]
     Active Substance: DASATINIB
  3. JARDIANCE [Concomitant]
     Active Substance: EMPAGLIFLOZIN
  4. LINAGLIPTIN [Concomitant]
     Active Substance: LINAGLIPTIN
  5. ROSUVASTATIN [Concomitant]
     Active Substance: ROSUVASTATIN
  6. CRESEMBA [Concomitant]
     Active Substance: ISAVUCONAZONIUM SULFATE
  7. ATOVAQUONE [Concomitant]
     Active Substance: ATOVAQUONE
  8. ESOMEPRAZOLE [Concomitant]
     Active Substance: ESOMEPRAZOLE
  9. EZETIMIBE [Concomitant]
     Active Substance: EZETIMIBE
  10. ENALAPRIL [Concomitant]
     Active Substance: ENALAPRIL
  11. CARVEDILOL [Concomitant]
     Active Substance: CARVEDILOL
  12. CLOPIDOGREL [Concomitant]
     Active Substance: CLOPIDOGREL BISULFATE
  13. URSODIOL [Concomitant]
     Active Substance: URSODIOL
  14. LEVOFLOXACIN HEMIHYDRATE [Concomitant]
     Active Substance: LEVOFLOXACIN
  15. INSULIN GLARGINE [Concomitant]
     Active Substance: INSULIN GLARGINE
  16. LOXOPROFEN SODIUM DIHYDRATE [Concomitant]
     Active Substance: LOXOPROFEN SODIUM DIHYDRATE
  17. ACETAMINOPHEN [Concomitant]
     Active Substance: ACETAMINOPHEN

REACTIONS (10)
  - Pharyngeal stenosis [Unknown]
  - Oxygen saturation decreased [Unknown]
  - Dyspnoea [Unknown]
  - Blood pressure decreased [Unknown]
  - Chills [Recovered/Resolved]
  - Nausea [Unknown]
  - Feeling hot [Unknown]
  - Pyrexia [Unknown]
  - Feeling abnormal [Recovering/Resolving]
  - Rash [Unknown]

NARRATIVE: CASE EVENT DATE: 20250325
